FAERS Safety Report 15833896 (Version 11)
Quarter: 2022Q1

REPORT INFORMATION
  Report Type: Spontaneous
  Country: CZ (occurrence: CZ)
  Receive Date: 20190116
  Receipt Date: 20220105
  Transmission Date: 20220423
  Serious: Yes (Hospitalization, Other)
  Sender: FDA-Public Use
  Company Number: CZ-TEVA-2018-CZ-920088

PATIENT
  Age: 86 Year
  Sex: Male

DRUGS (22)
  1. SERTRALINE [Suspect]
     Active Substance: SERTRALINE HYDROCHLORIDE
     Indication: Product used for unknown indication
     Dosage: 150 MILLIGRAM, QD
     Route: 065
  2. QUETIAPINE [Suspect]
     Active Substance: QUETIAPINE
     Indication: Mental disorder
     Dosage: 50 MILLIGRAM, QD
     Route: 048
  3. QUETIAPINE [Suspect]
     Active Substance: QUETIAPINE
     Dosage: INCREASED TO 100 MG DAILY
     Route: 048
  4. QUETIAPINE [Suspect]
     Active Substance: QUETIAPINE
     Dosage: 25 MILLIGRAMS, UNK
     Route: 048
  5. SOLIFENACIN [Suspect]
     Active Substance: SOLIFENACIN
     Indication: Product used for unknown indication
     Dosage: 10 MILLIGRAM
     Route: 065
  6. VESICARE [Suspect]
     Active Substance: SOLIFENACIN SUCCINATE
     Indication: Product used for unknown indication
     Dosage: 10 MILLIGRAM
     Route: 048
     Dates: end: 20191126
  7. TIAPRIDE [Suspect]
     Active Substance: TIAPRIDE
     Indication: Product used for unknown indication
     Dosage: UNK
     Route: 065
  8. OXAZEPAM [Suspect]
     Active Substance: OXAZEPAM
     Indication: Product used for unknown indication
     Dosage: UNK
     Route: 065
  9. CARBIDOPA\LEVODOPA [Concomitant]
     Active Substance: CARBIDOPA\LEVODOPA
     Dosage: INCREASED DOSE TO 600 MG/DAY
     Route: 048
  10. LEVODOPA/CARBIDOPA/ENTACAPONE ABZ [Concomitant]
     Dosage: UNK, (100/50/200 MG 6X1 TABL   )
     Route: 048
  11. RIVASTIGMINE [Concomitant]
     Active Substance: RIVASTIGMINE
     Dosage: 6 MILLIGRAM, QD
  12. ROPINIROLE [Concomitant]
     Active Substance: ROPINIROLE
     Dosage: 16 MILLIGRAM/KILOGRAM, QD (GRADUALLY DISCONTINUED BY HALF DOSE Q2D)
  13. MIDAZOLAM [Concomitant]
     Active Substance: MIDAZOLAM
     Indication: Sedative therapy
     Dosage: 5 MILLIGRAM, TOTAL
  14. AKINETON [Concomitant]
     Active Substance: BIPERIDEN HYDROCHLORIDE
     Indication: Product used for unknown indication
     Dosage: UNK
     Route: 065
  15. METOCLOPRAMIDE HYDROCHLORIDE [Concomitant]
     Active Substance: METOCLOPRAMIDE HYDROCHLORIDE
     Indication: Product used for unknown indication
     Dosage: 30 MILLIGRAM
     Route: 065
  16. GENTAMICIN [Concomitant]
     Active Substance: GENTAMICIN
     Indication: Product used for unknown indication
     Dosage: UNK
     Route: 065
  17. BENSERAZIDE HYDROCHLORIDE\LEVODOPA [Concomitant]
     Active Substance: BENSERAZIDE HYDROCHLORIDE\LEVODOPA
     Indication: Product used for unknown indication
     Dosage: UNK
     Route: 065
  18. DUPHALAC [Concomitant]
     Active Substance: LACTULOSE
     Indication: Product used for unknown indication
     Dosage: 30 MILLILITER, QD
     Route: 065
  19. CARBIDOPA\LEVODOPA [Concomitant]
     Active Substance: CARBIDOPA\LEVODOPA
     Indication: Product used for unknown indication
     Dosage: UNK
     Route: 066
  20. LEVODOPA [Concomitant]
     Active Substance: LEVODOPA
     Dosage: LEVODOPA/CARBIDOPA/ENTACAPONE (100/50/200 MG,1 TAB 6XD)
  21. CARBIDOPA [Concomitant]
     Active Substance: CARBIDOPA
     Dosage: LEVODOPA/CARBIDOPA/ENTACAPONE (100/50/200 MG, 1 TABLET 6 TIMES DAILY
  22. ENTACAPONE [Concomitant]
     Active Substance: ENTACAPONE
     Dosage: LEVODOPA/CARBIDOPA/ENTACAPONE(100/50/200 MG,1TAB 6XDAILY

REACTIONS (21)
  - Aggression [Recovering/Resolving]
  - Loss of consciousness [Recovered/Resolved]
  - Pneumonia [Unknown]
  - Psychomotor retardation [Recovering/Resolving]
  - Memory impairment [Recovering/Resolving]
  - Hallucination, visual [Recovered/Resolved]
  - Delirium [Recovered/Resolved]
  - Stupor [Recovering/Resolving]
  - Confusional state [Recovered/Resolved]
  - Incontinence [Recovered/Resolved]
  - Dyskinesia [Recovering/Resolving]
  - Seizure [Recovering/Resolving]
  - Somnolence [Recovered/Resolved]
  - Restlessness [Recovering/Resolving]
  - Depression [Unknown]
  - Psychotic disorder [Unknown]
  - Gait inability [Recovering/Resolving]
  - Parkinson^s disease [Unknown]
  - Mobility decreased [Unknown]
  - Urinary tract infection [Unknown]
  - Therapeutic product effect incomplete [Unknown]

NARRATIVE: CASE EVENT DATE: 20130101
